FAERS Safety Report 9715128 (Version 3)
Quarter: 2015Q3

REPORT INFORMATION
  Report Type: Spontaneous
  Country: US (occurrence: US)
  Receive Date: 20131126
  Receipt Date: 20150817
  Transmission Date: 20151125
  Serious: No
  Sender: FDA-Public Use
  Company Number: US-GILEAD-2013-0086898

PATIENT
  Age: 69 Year
  Sex: Female

DRUGS (2)
  1. LETAIRIS [Suspect]
     Active Substance: AMBRISENTAN
     Indication: PULMONARY ARTERIAL HYPERTENSION
     Dosage: 5 MG, QD
     Route: 048
     Dates: start: 20130906
  2. ADCIRCA [Concomitant]
     Active Substance: TADALAFIL

REACTIONS (5)
  - Oedema [Unknown]
  - Chest discomfort [Not Recovered/Not Resolved]
  - Dyspnoea [Unknown]
  - Chest pain [Not Recovered/Not Resolved]
  - Exercise tolerance decreased [Not Recovered/Not Resolved]
